FAERS Safety Report 24133008 (Version 1)
Quarter: 2024Q3

REPORT INFORMATION
  Report Type: Spontaneous
  Country: PL (occurrence: PL)
  Receive Date: 20240724
  Receipt Date: 20240724
  Transmission Date: 20241017
  Serious: Yes (Life-Threatening, Hospitalization, Other)
  Sender: SANDOZ
  Company Number: None

PATIENT
  Age: 27 Year
  Sex: Male

DRUGS (4)
  1. METHOTREXATE [Suspect]
     Active Substance: METHOTREXATE
     Indication: Product used for unknown indication
     Dosage: 15.000MG
     Route: 048
  2. METHYLPREDNISOLONE [Suspect]
     Active Substance: METHYLPREDNISOLONE
     Indication: Product used for unknown indication
     Dosage: UNK
     Route: 042
  3. PREDNISOLONE [Suspect]
     Active Substance: PREDNISOLONE
     Indication: Product used for unknown indication
     Dosage: 60.000MG QD
     Route: 048
  4. ANAKINRA [Concomitant]
     Active Substance: ANAKINRA
     Indication: Product used for unknown indication
     Dosage: 100.000MG QD
     Route: 058

REACTIONS (15)
  - Atrial flutter [Recovering/Resolving]
  - Pericardial effusion [Recovering/Resolving]
  - Pleural effusion [Recovering/Resolving]
  - Ascites [Recovering/Resolving]
  - Splenomegaly [Recovering/Resolving]
  - Global longitudinal strain abnormal [Recovering/Resolving]
  - Oropharyngeal pain [Recovered/Resolved]
  - Pericardial fibrosis [Recovering/Resolving]
  - Serum ferritin increased [Recovered/Resolved]
  - Hilar lymphadenopathy [Recovering/Resolving]
  - Condition aggravated [Recovering/Resolving]
  - Skin reaction [Recovered/Resolved]
  - Bradycardia [Recovering/Resolving]
  - Pyrexia [Recovered/Resolved]
  - Off label use [Unknown]
